FAERS Safety Report 10958397 (Version 1)
Quarter: 2015Q1

REPORT INFORMATION
  Report Type: Spontaneous
  Country: GB (occurrence: GB)
  Receive Date: 20150326
  Receipt Date: 20150326
  Transmission Date: 20150721
  Serious: Yes (Other)
  Sender: FDA-Public Use
  Company Number: GB-GLAXOSMITHKLINE-GB2015037239

PATIENT
  Age: 73 Year
  Sex: Female

DRUGS (5)
  1. LEVOTHYROXINE [Suspect]
     Active Substance: LEVOTHYROXINE
     Indication: HYPOTHYROIDISM
     Route: 048
  2. FLIXOTIDE [Concomitant]
     Active Substance: FLUTICASONE PROPIONATE
     Indication: ASTHMA
  3. HYDROCORTISONE. [Concomitant]
     Active Substance: HYDROCORTISONE
     Indication: ADRENAL DISORDER
  4. LEVOTHYROXINE [Suspect]
     Active Substance: LEVOTHYROXINE
     Route: 048
  5. SEREVENT [Suspect]
     Active Substance: SALMETEROL XINAFOATE
     Indication: ASTHMA
     Route: 048

REACTIONS (20)
  - Cough [Recovered/Resolved]
  - Urine sodium increased [Recovered/Resolved]
  - Productive cough [Recovered/Resolved]
  - Erythema [Recovered/Resolved]
  - Wrong technique in drug usage process [Unknown]
  - Malaise [Recovered/Resolved]
  - Skin burning sensation [Recovered/Resolved]
  - Drug ineffective [Recovered/Resolved]
  - Fatigue [Recovered/Resolved]
  - Dry skin [Recovered/Resolved]
  - Goitre [Recovered/Resolved]
  - Inflammation [Recovered/Resolved]
  - Off label use [Unknown]
  - Throat irritation [Recovered/Resolved]
  - Sneezing [Recovered/Resolved]
  - Abdominal distension [Recovered/Resolved]
  - Gait disturbance [Recovered/Resolved]
  - Sleep disorder [Recovered/Resolved]
  - Discomfort [Recovered/Resolved]
  - Adverse drug reaction [Recovered/Resolved]

NARRATIVE: CASE EVENT DATE: 20150120
